FAERS Safety Report 7543934-1 (Version None)
Quarter: 2011Q2

REPORT INFORMATION
  Report Type: 
  Country: None (occurrence: None)
  Receive Date: 20110613
  Receipt Date: 20110531
  Transmission Date: 20111010
  Serious: Yes (Hospitalization)
  Sender: FDA-Public Use
  Company Number: PHHY2011NL47199

PATIENT
  Sex: Male

DRUGS (2)
  1. ZOMETA [Suspect]
     Dosage: 4 MG/5ML 1XPER21DAYS
     Dates: start: 20110511
  2. ZOMETA [Suspect]
     Indication: PROSTATE CANCER
     Dosage: 4 MG/5ML 1XPER21DAYS
     Dates: start: 20110429

REACTIONS (5)
  - JOINT SWELLING [None]
  - ANURIA [None]
  - GAIT DISTURBANCE [None]
  - CYSTITIS NONINFECTIVE [None]
  - PYREXIA [None]
